FAERS Safety Report 9168821 (Version 1)
Quarter: 2013Q1

REPORT INFORMATION
  Report Type: Spontaneous
  Country: US (occurrence: US)
  Receive Date: 20130318
  Receipt Date: 20130318
  Transmission Date: 20140127
  Serious: No
  Sender: FDA-Public Use
  Company Number: US-009507513-1303USA005982

PATIENT
  Sex: Male

DRUGS (1)
  1. AZASITE [Suspect]
     Dosage: 1 DROP IN BOTH EYES TWICE A DAY FOR 1 WEEK, THEN ONE DROP IN EACH EYE ONCE A DAY FOR 3 WEEKS
     Route: 047

REACTIONS (4)
  - Drug dose omission [Unknown]
  - Inappropriate schedule of drug administration [Unknown]
  - Product packaging quantity issue [Unknown]
  - No adverse event [Unknown]
